FAERS Safety Report 4378797-9 (Version None)
Quarter: 2004Q2

REPORT INFORMATION
  Report Type: 
  Country: None (occurrence: None)
  Receive Date: 20040609
  Receipt Date: 20040527
  Transmission Date: 20050107
  Serious: Yes (Other)
  Sender: FDA-Public Use
  Company Number: 2004036082

PATIENT
  Sex: Female

DRUGS (1)
  1. ZOLOFT [Suspect]
     Indication: ILL-DEFINED DISORDER

REACTIONS (5)
  - HAEMORRHAGE [None]
  - HYSTERECTOMY [None]
  - LOSS OF EMPLOYMENT [None]
  - MARITAL PROBLEM [None]
  - PERSONALITY DISORDER [None]
